FAERS Safety Report 22052447 (Version 1)
Quarter: 2023Q1

REPORT INFORMATION
  Report Type: Spontaneous
  Country: JP (occurrence: JP)
  Receive Date: 20230302
  Receipt Date: 20230302
  Transmission Date: 20230418
  Serious: Yes (Hospitalization)
  Sender: FDA-Public Use
  Company Number: JP-BAXTER-2022BAX025790

PATIENT
  Age: 7 Decade
  Sex: Male
  Weight: 65 kg

DRUGS (2)
  1. EXTRANEAL [Suspect]
     Active Substance: CALCIUM CHLORIDE\ICODEXTRIN\MAGNESIUM CHLORIDE\SODIUM CHLORIDE\SODIUM LACTATE
     Indication: Chronic kidney disease
     Dosage: 1500 ML ONCE DAILY
     Route: 033
     Dates: start: 20190121
  2. REGUNEAL LCA [Suspect]
     Active Substance: CALCIUM CHLORIDE\DEXTROSE MONOHYDRATE\HYDROCHLORIC ACID\MAGNESIUM CHLORIDE\SODIUM BICARBONATE\SODIUM
     Indication: Chronic kidney disease
     Dosage: 1200 ML FOUR TIMES DAILY
     Route: 033
     Dates: start: 20190114, end: 20230120

REACTIONS (5)
  - Pleural effusion [Not Recovered/Not Resolved]
  - Coronavirus infection [Recovered/Resolved]
  - Disease progression [Unknown]
  - Hypervolaemia [Unknown]
  - Urine output decreased [Unknown]

NARRATIVE: CASE EVENT DATE: 20221122
